FAERS Safety Report 13712666 (Version 1)
Quarter: 2017Q3

REPORT INFORMATION
  Report Type: Spontaneous
  Country: US (occurrence: US)
  Receive Date: 20170703
  Receipt Date: 20170703
  Transmission Date: 20171127
  Serious: Yes (Other)
  Sender: FDA-Public Use
  Company Number: US-BAYER-2017-122280

PATIENT
  Age: 74 Year
  Sex: Female
  Weight: 50.98 kg

DRUGS (3)
  1. MIGRAINE [Concomitant]
     Dosage: UNK
  2. BAYER LOW DOSE [Suspect]
     Active Substance: ASPIRIN
     Indication: ATRIOVENTRICULAR BLOCK
     Dosage: UNK
  3. MIRALAX [Suspect]
     Active Substance: POLYETHYLENE GLYCOL 3350
     Indication: GASTROINTESTINAL DISORDER
     Dosage: 1 DF, 1 CAPFUL IN WATER; CONSUMER DOES NOT RECALL THE YEAR SHE STARTED TAKING THE MIRALAX.
     Route: 048
     Dates: end: 20170602

REACTIONS (8)
  - Off label use [Unknown]
  - Constipation [Recovered/Resolved]
  - Product use in unapproved indication [Unknown]
  - Drug hypersensitivity [Unknown]
  - Constipation [Recovered/Resolved]
  - Drug ineffective [None]
  - Abdominal pain upper [Recovered/Resolved]
  - Haemorrhage [Recovered/Resolved]

NARRATIVE: CASE EVENT DATE: 2016
